FAERS Safety Report 18048557 (Version 2)
Quarter: 2020Q3

REPORT INFORMATION
  Report Type: Spontaneous
  Country: US (occurrence: US)
  Receive Date: 20200721
  Receipt Date: 20200901
  Transmission Date: 20201103
  Serious: Yes (Death, Hospitalization, Other)
  Sender: FDA-Public Use
  Company Number: US-TEVA-2020-US-1803178

PATIENT
  Age: 58 Year
  Sex: Female
  Weight: 136.08 kg

DRUGS (9)
  1. ALBUTEROL SULFATE. [Interacting]
     Active Substance: ALBUTEROL SULFATE
     Indication: WHEEZING
  2. METFORMIN [Concomitant]
     Active Substance: METFORMIN HYDROCHLORIDE
     Dosage: 1000 MILLIGRAM DAILY;
  3. ALBUTEROL SULFATE. [Interacting]
     Active Substance: ALBUTEROL SULFATE
     Indication: DYSPNOEA
     Dosage: 1 DOSE IN AFTERNOON AND 1 BEFORE GOING TO BED?INHALE 1 PUFF BY MOUTH EVERY 4 TO 6 HOURS AS NEEDED
     Route: 065
     Dates: start: 20191212, end: 20191213
  4. HYDROCORTISONE. [Interacting]
     Active Substance: HYDROCORTISONE
     Indication: STRESS
     Route: 065
  5. SOMATROPIN. [Concomitant]
     Active Substance: SOMATROPIN
     Dosage: .4 MILLIGRAM DAILY; 0.4 MG PER DAY
  6. HYDROCORTISONE. [Interacting]
     Active Substance: HYDROCORTISONE
     Dosage: 25 MILLIGRAM DAILY; 25 MG PER DAY
     Route: 065
  7. FLUTICASONE PROPIONATE. [Interacting]
     Active Substance: FLUTICASONE PROPIONATE
     Route: 065
     Dates: start: 20191212
  8. FLUDROCORTISONE ACETATE. [Suspect]
     Active Substance: FLUDROCORTISONE ACETATE
     Route: 065
  9. LEVOTHYROXINE SODIUM. [Interacting]
     Active Substance: LEVOTHYROXINE SODIUM
     Dosage: .112 MILLIGRAM DAILY; LEVOTHYROXINE 0.112 MG PER DAY
     Route: 065

REACTIONS (12)
  - Femur fracture [Unknown]
  - Drug interaction [Unknown]
  - Knee operation [Unknown]
  - Respiratory tract infection viral [Unknown]
  - Pituitary tumour benign [Unknown]
  - Wrist fracture [Unknown]
  - Respiratory distress [Unknown]
  - Dyspnoea [Unknown]
  - Depressed mood [Unknown]
  - Unresponsive to stimuli [Unknown]
  - Urinary incontinence [Unknown]
  - Electrolyte imbalance [Fatal]

NARRATIVE: CASE EVENT DATE: 201907
